FAERS Safety Report 7503928-9 (Version None)
Quarter: 2011Q2

REPORT INFORMATION
  Report Type: 
  Country: None (occurrence: None)
  Receive Date: 20110401
  Receipt Date: 20100616
  Transmission Date: 20111010
  Serious: Yes (Other)
  Sender: FDA-Public Use
  Company Number: 238299USA

PATIENT
  Age: 46 Year
  Sex: Male

DRUGS (3)
  1. ETOPOSIDE [Suspect]
  2. CYTARABINE [Suspect]
  3. MITOXANTRONE [Suspect]

REACTIONS (1)
  - ACUTE MYELOID LEUKAEMIA RECURRENT [None]
